FAERS Safety Report 25395951 (Version 1)
Quarter: 2025Q2

REPORT INFORMATION
  Report Type: Spontaneous
  Country: US (occurrence: US)
  Receive Date: 20250604
  Receipt Date: 20250604
  Transmission Date: 20250716
  Serious: No
  Sender: BAYER HEALTHCARE PHARMACEUTICALS INC.
  Company Number: US-BAYER-2025A074167

PATIENT
  Age: 33 Year
  Sex: Female

DRUGS (2)
  1. MIRENA [Suspect]
     Active Substance: LEVONORGESTREL
     Indication: Intrauterine contraception
     Dosage: 20?G/DAY
     Route: 015
     Dates: start: 202105
  2. NUCALA [Concomitant]
     Active Substance: MEPOLIZUMAB
     Indication: Nasal polyps

REACTIONS (6)
  - Nasal congestion [None]
  - Cough [None]
  - Wheezing [None]
  - Throat tightness [None]
  - Throat irritation [None]
  - Headache [None]

NARRATIVE: CASE EVENT DATE: 20250101
